FAERS Safety Report 8787986 (Version 4)
Quarter: 2013Q1

REPORT INFORMATION
  Report Type: Spontaneous
  Country: JP (occurrence: JP)
  Receive Date: 20120914
  Receipt Date: 20130128
  Transmission Date: 20140127
  Serious: Yes (Other)
  Sender: FDA-Public Use
  Company Number: JP-ELI_LILLY_AND_COMPANY-JP201201004551

PATIENT
  Age: 50 Year
  Sex: Female

DRUGS (10)
  1. BYETTA [Suspect]
     Indication: DIABETES MELLITUS
     Dosage: UNK
     Route: 058
     Dates: start: 20111214, end: 20111228
  2. BYETTA [Suspect]
     Dosage: UNK
     Route: 058
     Dates: start: 20111229
  3. BYETTA [Suspect]
     Dosage: 10 UG, UNK
     Route: 058
  4. CORTRIL [Concomitant]
     Indication: HYPOPITUITARISM
     Dosage: UNK
     Route: 048
  5. DESMOPRESSIN [Concomitant]
     Indication: HYPOPITUITARISM
     Dosage: UNK
     Route: 045
  6. THYRADIN-S [Concomitant]
     Indication: HYPOPITUITARISM
     Dosage: UNK
     Route: 048
  7. LENDORMIN [Concomitant]
     Dosage: UNK
     Route: 048
  8. DEPAKENE [Concomitant]
     Dosage: UNK
     Route: 048
  9. METFORMIN HYDROCHLORIDE [Concomitant]
     Dosage: UNK
     Route: 048
  10. CRESTOR [Concomitant]
     Dosage: UNK
     Route: 048

REACTIONS (2)
  - Adrenal insufficiency [Recovered/Resolved]
  - Drug interaction [Unknown]
